FAERS Safety Report 9384554 (Version 4)
Quarter: 2013Q4

REPORT INFORMATION
  Report Type: Spontaneous
  Country: PT (occurrence: PT)
  Receive Date: 20130705
  Receipt Date: 20131008
  Transmission Date: 20140711
  Serious: Yes (Other)
  Sender: FDA-Public Use
  Company Number: PT-MPIJNJ-2013-05111

PATIENT
  Sex: 0

DRUGS (5)
  1. VELCADE [Suspect]
     Indication: PLASMA CELL MYELOMA
     Dosage: 2.4 MG, UNK
     Route: 058
     Dates: start: 20130514, end: 20130617
  2. DEXAMETHASONE [Concomitant]
     Indication: PLASMA CELL MYELOMA
     Dosage: 40 MG, UNK
     Dates: start: 20130514
  3. DEXAMETHASONE [Concomitant]
     Dosage: UNK
     Route: 065
  4. ONDANSETRON [Concomitant]
     Indication: PLASMA CELL MYELOMA
     Dosage: 40 MG, UNK
     Dates: start: 20130514, end: 20130617
  5. LENALIDOMIDE [Concomitant]
     Indication: PLASMA CELL MYELOMA
     Route: 065

REACTIONS (5)
  - Neurological decompensation [Unknown]
  - Neurogenic bladder [Recovered/Resolved]
  - Urinary retention [Not Recovered/Not Resolved]
  - Dysaesthesia [Recovering/Resolving]
  - Paraesthesia [Unknown]
